FAERS Safety Report 17274631 (Version 1)
Quarter: 2020Q1

REPORT INFORMATION
  Report Type: Spontaneous
  Country: US (occurrence: US)
  Receive Date: 20200115
  Receipt Date: 20200115
  Transmission Date: 20200409
  Serious: Yes (Other)
  Sender: FDA-Public Use
  Company Number: US-AMGEN-USASP2020004707

PATIENT

DRUGS (5)
  1. IFOSFAMIDE. [Concomitant]
     Active Substance: IFOSFAMIDE
     Indication: HODGKIN^S DISEASE
     Dosage: 5000 MILLIGRAM/SQ. METER
  2. ETOPOSIDE. [Concomitant]
     Active Substance: ETOPOSIDE
     Indication: HODGKIN^S DISEASE
     Dosage: 100 MILLIGRAM/SQ. METER, DAYS 1- 3
     Route: 042
  3. FILGRASTIM [Suspect]
     Active Substance: FILGRASTIM
     Indication: HAEMATOPOIETIC STEM CELL MOBILISATION
     Route: 065
  4. PEMBROLIZUMAB. [Concomitant]
     Active Substance: PEMBROLIZUMAB
     Indication: HODGKIN^S DISEASE
     Dosage: 200 MILLIGRAM
     Route: 042
  5. CARBOPLATIN. [Concomitant]
     Active Substance: CARBOPLATIN
     Indication: HODGKIN^S DISEASE
     Dosage: DAY 2
     Route: 042

REACTIONS (1)
  - Drug hypersensitivity [Unknown]
